FAERS Safety Report 25917282 (Version 4)
Quarter: 2025Q4

REPORT INFORMATION
  Report Type: Spontaneous
  Country: US (occurrence: US)
  Receive Date: 20251014
  Receipt Date: 20251111
  Transmission Date: 20260117
  Serious: No
  Sender: KARYOPHARM THERAPEUTICS
  Company Number: US-KARYOPHARM-2025KPT100817

PATIENT

DRUGS (5)
  1. SELINEXOR [Suspect]
     Active Substance: SELINEXOR
     Indication: Plasma cell myeloma
     Dosage: 60 MG EVERY OTHER WEEK
     Route: 048
     Dates: start: 20250925, end: 2025
  2. SELINEXOR [Suspect]
     Active Substance: SELINEXOR
     Dosage: 60 MG WEEKLY FOR 2 WEEKS ON THEN 2 WEEKS OFF
     Route: 048
     Dates: start: 2025, end: 2025
  3. ACYCLOVIR [Concomitant]
     Active Substance: ACYCLOVIR
  4. ONDANSETRON [Concomitant]
     Active Substance: ONDANSETRON
  5. POMALYST [Concomitant]
     Active Substance: POMALIDOMIDE

REACTIONS (4)
  - Hypoaesthesia [Not Recovered/Not Resolved]
  - Plasma cell myeloma [Unknown]
  - Dizziness [Not Recovered/Not Resolved]
  - Asthenia [Unknown]

NARRATIVE: CASE EVENT DATE: 20250101
